FAERS Safety Report 8378198-2 (Version None)
Quarter: 2012Q2

REPORT INFORMATION
  Report Type: 
  Country: None (occurrence: None)
  Receive Date: 20120522
  Receipt Date: 20120516
  Transmission Date: 20120825
  Serious: No
  Sender: FDA-Public Use
  Company Number: US-PFIZER INC-2012119699

PATIENT
  Sex: Female
  Weight: 58.503 kg

DRUGS (4)
  1. PREMPRO [Suspect]
     Indication: MENOPAUSAL SYMPTOMS
     Dosage: UNK, 1X/DAY
     Route: 048
  2. PREMPRO [Suspect]
     Dosage: 1 DF, ALTERNATE DAY
     Route: 048
     Dates: end: 20120201
  3. IBUPROFEN (ADVIL) [Concomitant]
     Indication: RHEUMATOID ARTHRITIS
     Dosage: UNK
  4. PREMPRO [Suspect]
     Indication: OESTROGEN REPLACEMENT THERAPY
     Dosage: 1 DF, 1X/DAY
     Route: 048

REACTIONS (3)
  - FEELING ABNORMAL [None]
  - ANXIETY [None]
  - FATIGUE [None]
